FAERS Safety Report 24784448 (Version 1)
Quarter: 2024Q4

REPORT INFORMATION
  Report Type: Spontaneous
  Country: GB (occurrence: GB)
  Receive Date: 20241227
  Receipt Date: 20241227
  Transmission Date: 20250115
  Serious: Yes (Other)
  Sender: FERRING
  Company Number: None

PATIENT

DRUGS (1)
  1. DESMOPRESSIN [Suspect]
     Active Substance: DESMOPRESSIN
     Indication: Enuresis
     Dosage: 120 ONCE AT NIGHT
     Route: 065
     Dates: start: 20241213, end: 20241223

REACTIONS (6)
  - Periorbital swelling [Recovering/Resolving]
  - Nausea [Recovered/Resolved with Sequelae]
  - Vomiting [Not Recovered/Not Resolved]
  - Abdominal pain upper [Recovering/Resolving]
  - Hot flush [Recovering/Resolving]
  - Diarrhoea [Not Recovered/Not Resolved]
